FAERS Safety Report 11751789 (Version 4)
Quarter: 2016Q1

REPORT INFORMATION
  Report Type: Spontaneous
  Country: JP (occurrence: JP)
  Receive Date: 20151118
  Receipt Date: 20160222
  Transmission Date: 20160525
  Serious: Yes (Death, Other)
  Sender: FDA-Public Use
  Company Number: JP-GILEAD-2015-0180998

PATIENT
  Age: 56 Year
  Sex: Male

DRUGS (10)
  1. TASMOLIN                           /00079501/ [Concomitant]
     Active Substance: BIPERIDEN
     Dosage: 1 DF, QD, AFTER DINNER
     Route: 048
     Dates: start: 20131001, end: 20151103
  2. FLUNITRAZEPAM [Concomitant]
     Active Substance: FLUNITRAZEPAM
     Dosage: 1 DF, QHS
     Route: 048
     Dates: start: 20131001, end: 20151103
  3. LIMAS [Concomitant]
     Active Substance: LITHIUM CARBONATE
     Dosage: 3 DF, TID
     Route: 048
     Dates: start: 20100203, end: 20151027
  4. BUPLEURUM FALCATUM ROOT W/CALCIUM SULFATE/GLY [Concomitant]
     Dosage: 6 G, BID, AFTER BREAKFAST AND DINNER
     Route: 048
     Dates: start: 20100301, end: 20151103
  5. SERENACE [Concomitant]
     Active Substance: HALOPERIDOL
     Dosage: 3 MG, QD, AFTER DINNER
     Route: 048
     Dates: start: 20100203, end: 20151027
  6. ALFACALCIDOL [Concomitant]
     Active Substance: ALFACALCIDOL
     Dosage: 1 DF, QD, AFTER BREAKFAST
     Route: 048
     Dates: start: 20140501, end: 20151027
  7. LEVOMEPROMAZINE [Concomitant]
     Active Substance: LEVOMEPROMAZINE
     Dosage: 50 MG, QD, AFTER DINNER
     Route: 048
     Dates: start: 20131001, end: 20151027
  8. SERENACE [Concomitant]
     Active Substance: HALOPERIDOL
     Dosage: 1.5 MG, QD, AFTER DINNER
     Route: 048
     Dates: start: 20151029, end: 20151103
  9. HARVONI [Suspect]
     Active Substance: LEDIPASVIR\SOFOSBUVIR
     Indication: HEPATITIS C
     Dosage: 1 DF, UNK
     Route: 048
     Dates: start: 20151028
  10. LEVOMEPROMAZINE [Concomitant]
     Active Substance: LEVOMEPROMAZINE
     Dosage: 25 MG, QD, AFTER DINNER
     Route: 048
     Dates: start: 20151029, end: 20151103

REACTIONS (5)
  - Completed suicide [Fatal]
  - Malaise [Unknown]
  - Wrong technique in product usage process [Not Recovered/Not Resolved]
  - Decreased appetite [Unknown]
  - Abdominal discomfort [Not Recovered/Not Resolved]

NARRATIVE: CASE EVENT DATE: 20151029
